FAERS Safety Report 8320284-7 (Version None)
Quarter: 2012Q2

REPORT INFORMATION
  Report Type: 
  Country: None (occurrence: None)
  Receive Date: 20120426
  Receipt Date: 20120426
  Transmission Date: 20120825
  Serious: Yes (Other)
  Sender: FDA-Public Use
  Company Number: None

PATIENT
  Age: 62 Year
  Sex: Female
  Weight: 48.5349 kg

DRUGS (1)
  1. LIDOCAINE [Suspect]
     Indication: EPIDURAL ANAESTHESIA
     Dosage: 1/2 CC LIDOCAINE  1/2 CC KENALOG ONCE MIXED TOGETHER NEEDLE
     Dates: start: 20120228

REACTIONS (10)
  - INFREQUENT BOWEL MOVEMENTS [None]
  - WEIGHT INCREASED [None]
  - HEART RATE IRREGULAR [None]
  - WEIGHT DECREASED [None]
  - AGEUSIA [None]
  - HYPOAESTHESIA [None]
  - CHEST PAIN [None]
  - PHARYNGEAL OEDEMA [None]
  - BLADDER DISORDER [None]
  - HYPOAESTHESIA ORAL [None]
